FAERS Safety Report 5411237-7 (Version None)
Quarter: 2007Q3

REPORT INFORMATION
  Report Type: 
  Country: None (occurrence: None)
  Receive Date: 20070810
  Receipt Date: 20070802
  Transmission Date: 20080115
  Serious: Yes (Life-Threatening, Hospitalization, Other)
  Sender: FDA-Public Use
  Company Number: B0482677A

PATIENT
  Age: 35 Year
  Sex: Female

DRUGS (2)
  1. AUGMENTIN '125' [Suspect]
     Indication: TONSILLITIS
     Dosage: 1G PER DAY
     Route: 048
     Dates: start: 20070726, end: 20070727
  2. ARSUMAX [Concomitant]
     Dosage: 50MG VARIABLE DOSE
     Route: 048
     Dates: start: 20070723, end: 20070726

REACTIONS (5)
  - DERMATITIS EXFOLIATIVE [None]
  - ILL-DEFINED DISORDER [None]
  - PRURITUS [None]
  - THERMAL BURN [None]
  - TOXIC EPIDERMAL NECROLYSIS [None]
